FAERS Safety Report 4410488-8 (Version None)
Quarter: 2004Q3

REPORT INFORMATION
  Report Type: 
  Country: None (occurrence: None)
  Receive Date: 20040726
  Receipt Date: 20040712
  Transmission Date: 20050211
  Serious: Yes (Hospitalization, Other)
  Sender: FDA-Public Use
  Company Number: 2004029073

PATIENT
  Age: 58 Year
  Sex: Male

DRUGS (3)
  1. SORTIS (ATORVASTATIN) [Suspect]
     Indication: CORONARY ARTERY DISEASE
     Dosage: 20 MG (20 MG, 1 IN 1 D), ORAL
     Route: 048
     Dates: end: 20040420
  2. ATENOLOL (ATENIOLOL) [Concomitant]
  3. ACETYLSALICYLIC ACID SRT [Concomitant]

REACTIONS (2)
  - HAEMOGLOBIN DECREASED [None]
  - HAEMOLYTIC ANAEMIA [None]
